FAERS Safety Report 24064053 (Version 6)
Quarter: 2025Q2

REPORT INFORMATION
  Report Type: Spontaneous
  Country: JP (occurrence: JP)
  Receive Date: 20240709
  Receipt Date: 20250619
  Transmission Date: 20250717
  Serious: Yes (Death, Hospitalization, Other)
  Sender: GENMAB
  Company Number: JP-GENMAB-2024-02268

PATIENT
  Age: 77 Year
  Sex: Male

DRUGS (21)
  1. EPKINLY [Suspect]
     Active Substance: EPCORITAMAB-BYSP
     Indication: Diffuse large B-cell lymphoma refractory
     Route: 058
     Dates: start: 20240603, end: 20240603
  2. EPKINLY [Suspect]
     Active Substance: EPCORITAMAB-BYSP
     Route: 058
     Dates: start: 20240610, end: 20240610
  3. EPKINLY [Suspect]
     Active Substance: EPCORITAMAB-BYSP
     Route: 058
     Dates: start: 20240617, end: 20240625
  4. CORTICOTROPIN [Suspect]
     Active Substance: CORTICOTROPIN
  5. DEXAMETHASONE SODIUM PHOSPHATE [Concomitant]
     Active Substance: DEXAMETHASONE SODIUM PHOSPHATE
     Indication: Prophylaxis
     Dates: start: 20240603, end: 20240613
  6. DEXAMETHASONE SODIUM PHOSPHATE [Concomitant]
     Active Substance: DEXAMETHASONE SODIUM PHOSPHATE
     Dates: start: 20240617, end: 20240628
  7. DIPHENHYDRAMINE [Concomitant]
     Active Substance: DIPHENHYDRAMINE
     Indication: Prophylaxis
     Dates: start: 20240603, end: 20240625
  8. ACETAMINOPHEN [Concomitant]
     Active Substance: ACETAMINOPHEN
     Indication: Prophylaxis
     Dates: start: 20240603, end: 20240625
  9. DEXTROSE\SODIUM CHLORIDE\SODIUM LACTATE [Concomitant]
     Active Substance: DEXTROSE\SODIUM CHLORIDE\SODIUM LACTATE
     Indication: Prophylaxis
     Dates: start: 20240603, end: 20240624
  10. XARELTO [Concomitant]
     Active Substance: RIVAROXABAN
     Dosage: 15 MILLIGRAM, QD, AFTER BREAKFAST
  11. BISOPROLOL FUMARATE [Concomitant]
     Active Substance: BISOPROLOL FUMARATE
     Dosage: 0.625 MILLIGRAM, QD, AFTER BREAKFAST
  12. RABEPRAZOLE SODIUM [Concomitant]
     Active Substance: RABEPRAZOLE SODIUM
     Dosage: 10 MILLIGRAM, QD, AFTER BREAKFAST
  13. SULFAMETHOXAZOLE\TRIMETHOPRIM [Concomitant]
     Active Substance: SULFAMETHOXAZOLE\TRIMETHOPRIM
     Dosage: UNK, QD, COMBINATION TABLETS, AFTER BREAKFAST
  14. VALACYCLOVIR HYDROCHLORIDE [Concomitant]
     Active Substance: VALACYCLOVIR HYDROCHLORIDE
     Dosage: 500 MILLIGRAM, QD, AFTER BREAKFAST
  15. MAGNESIUM OXIDE [Concomitant]
     Active Substance: MAGNESIUM OXIDE
     Dosage: 250 MILLIGRAM, TID, AFTER BREAKFAST, LUNCH, AND DINNER
  16. REBAMIPIDE [Concomitant]
     Active Substance: REBAMIPIDE
     Dosage: 100 MILLIGRAM, TID, AFTER BREAKFAST, LUNCH, AND DINNER
  17. BIOFERMIN ANTIDIARRHOIC [Concomitant]
     Dosage: UNK, TID, COMBINATION POWDER, AFTER BREAKFAST, LUNCH, AND DINNER
  18. ENTECAVIR [Concomitant]
     Active Substance: ENTECAVIR
     Indication: Chronic hepatitis B
  19. LATACHIMO [Concomitant]
     Dosage: UNK, QD, COMBINATION OPHTHALMIC SOLUTION, BEFORE BED
  20. TRUSOPT [Concomitant]
     Active Substance: DORZOLAMIDE HYDROCHLORIDE
  21. PIRENOXINE [Concomitant]
     Active Substance: PIRENOXINE

REACTIONS (5)
  - Delirium [Not Recovered/Not Resolved]
  - Immune effector cell-associated neurotoxicity syndrome [Not Recovered/Not Resolved]
  - Cytokine release syndrome [Recovered/Resolved]
  - Diffuse large B-cell lymphoma refractory [Fatal]
  - Pyrexia [Recovering/Resolving]

NARRATIVE: CASE EVENT DATE: 20240608
